FAERS Safety Report 20525755 (Version 1)
Quarter: 2022Q1

REPORT INFORMATION
  Report Type: Spontaneous
  Country: DE (occurrence: DE)
  Receive Date: 20220228
  Receipt Date: 20220228
  Transmission Date: 20220424
  Serious: Yes (Other)
  Sender: FDA-Public Use
  Company Number: None

PATIENT
  Sex: Female
  Weight: 60 kg

DRUGS (7)
  1. DIMENHYDRINATE [Concomitant]
     Active Substance: DIMENHYDRINATE
     Indication: Hyperemesis gravidarum
     Route: 042
     Dates: start: 20200728, end: 20200803
  2. PROTAPHANE [Concomitant]
     Active Substance: INSULIN HUMAN
     Indication: Gestational diabetes
     Dosage: 6 (IE/D (BIS 4, (0-0-0-6)
     Route: 058
     Dates: start: 20210205, end: 20210227
  3. ACTRAPID [Concomitant]
     Active Substance: INSULIN HUMAN
     Indication: Gestational diabetes
     Dosage: 18 (IE/D (BIS 2))
     Route: 058
     Dates: start: 20210205, end: 20210227
  4. QUETIAPINE [Suspect]
     Active Substance: QUETIAPINE
     Indication: Bipolar II disorder
     Dosage: 100 [MG/D ]
     Route: 048
     Dates: start: 20200521, end: 20210227
  5. CITALOPRAM [Concomitant]
     Active Substance: CITALOPRAM HYDROBROMIDE
     Indication: Bipolar II disorder
     Dosage: 10 [MG/D ]
     Route: 048
     Dates: start: 20200521, end: 20210227
  6. ZOFRAN [Concomitant]
     Active Substance: ONDANSETRON HYDROCHLORIDE
     Indication: Hyperemesis gravidarum
     Dosage: UNKNOWN
     Route: 042
     Dates: start: 20200728, end: 20200906
  7. MCP [Concomitant]
     Active Substance: METOCLOPRAMIDE HYDROCHLORIDE
     Indication: Hyperemesis gravidarum
     Dosage: UNKNOWN
     Route: 042
     Dates: start: 20200728, end: 20200803

REACTIONS (2)
  - Gestational diabetes [Recovered/Resolved]
  - Exposure during pregnancy [Unknown]
